FAERS Safety Report 5609242-0 (Version None)
Quarter: 2008Q1

REPORT INFORMATION
  Report Type: 
  Country: None (occurrence: None)
  Receive Date: 20080129
  Receipt Date: 20080129
  Transmission Date: 20080703
  Serious: Yes (Hospitalization)
  Sender: FDA-Public Use
  Company Number: None

PATIENT
  Age: 64 Year
  Sex: Female
  Weight: 61.2356 kg

DRUGS (2)
  1. AMIODARONE HCL [Suspect]
     Indication: ATRIAL FIBRILLATION
  2. AMIODARONE HCL [Suspect]
     Indication: CONGESTIVE CARDIOMYOPATHY

REACTIONS (5)
  - PLEURAL EFFUSION [None]
  - PULMONARY TOXICITY [None]
  - RESPIRATORY DISTRESS [None]
  - SPUTUM DISCOLOURED [None]
  - TACHYPNOEA [None]
